FAERS Safety Report 12238568 (Version 1)
Quarter: 2016Q2

REPORT INFORMATION
  Report Type: Spontaneous
  Country: US (occurrence: None)
  Receive Date: 20160404
  Receipt Date: 20160404
  Transmission Date: 20160815
  Serious: Yes (Other)
  Sender: FDA-Public Use
  Company Number: None

PATIENT
  Age: 41 Year
  Sex: Male

DRUGS (17)
  1. TOBRAMYCIN SOL [Concomitant]
  2. GABAPENTIN. [Concomitant]
     Active Substance: GABAPENTIN
  3. HYDROCORTISONE OINT [Concomitant]
  4. VITAMIN D [Concomitant]
     Active Substance: CHOLECALCIFEROL
  5. HYDROXYCHLOROQUINE [Concomitant]
     Active Substance: HYDROXYCHLOROQUINE
  6. AZATHIOPRINE. [Concomitant]
     Active Substance: AZATHIOPRINE
  7. KETOCONAZOLE. [Concomitant]
     Active Substance: KETOCONAZOLE
  8. TERBINAFINE. [Concomitant]
     Active Substance: TERBINAFINE
  9. ALLOPURINOL. [Concomitant]
     Active Substance: ALLOPURINOL
  10. CLINDAMYCIN [Concomitant]
     Active Substance: CLINDAMYCIN\CLINDAMYCIN PHOSPHATE
  11. HYDROCODONE BITARTRATE AND ACETAMINOPHEN [Concomitant]
     Active Substance: ACETAMINOPHEN\HYDROCODONE BITARTRATE
  12. CEFUROXIME. [Concomitant]
     Active Substance: CEFUROXIME
  13. TESTOPEL [Suspect]
     Active Substance: TESTOSTERONE
     Indication: TESTICULAR DISORDER
     Dosage: 12 DF EVERY 4 MONTHS SUBCUTANEOUS
     Route: 058
     Dates: start: 20151201, end: 20160401
  14. LISINOPRIL. [Concomitant]
     Active Substance: LISINOPRIL
  15. DIPHEN/ATROP [Concomitant]
     Active Substance: ATROPINE SULFATE\DIPHENOXYLATE
  16. PREDNISONE. [Concomitant]
     Active Substance: PREDNISONE
  17. DOXYCYCLINE HYCLATE. [Concomitant]
     Active Substance: DOXYCYCLINE HYCLATE

REACTIONS (3)
  - Weight decreased [None]
  - Hot flush [None]
  - Dysgeusia [None]

NARRATIVE: CASE EVENT DATE: 20151201
